FAERS Safety Report 8517397-3 (Version None)
Quarter: 2012Q3

REPORT INFORMATION
  Report Type: 
  Country: None (occurrence: None)
  Receive Date: 20120718
  Receipt Date: 20120716
  Transmission Date: 20120928
  Serious: Yes (Other)
  Sender: FDA-Public Use
  Company Number: US-ROCHE-1057666

PATIENT
  Sex: Male
  Weight: 78.996 kg

DRUGS (1)
  1. ZELBORAF [Suspect]
     Indication: MALIGNANT MELANOMA
     Route: 048
     Dates: start: 20120312

REACTIONS (15)
  - DYSGEUSIA [None]
  - ALOPECIA [None]
  - OCULAR HYPERAEMIA [None]
  - DECREASED APPETITE [None]
  - DISEASE PROGRESSION [None]
  - SUNBURN [None]
  - DIARRHOEA [None]
  - NEOPLASM [None]
  - NAUSEA [None]
  - PRURITUS [None]
  - MELANOCYTIC NAEVUS [None]
  - RASH [None]
  - SKIN PAPILLOMA [None]
  - SQUAMOUS CELL CARCINOMA [None]
  - SKIN MASS [None]
